FAERS Safety Report 18530986 (Version 11)
Quarter: 2021Q1

REPORT INFORMATION
  Report Type: Spontaneous
  Country: CA (occurrence: CA)
  Receive Date: 20201121
  Receipt Date: 20210326
  Transmission Date: 20210419
  Serious: Yes (Other)
  Sender: FDA-Public Use
  Company Number: CA-CELLTRION INC.-2020CA027622

PATIENT

DRUGS (18)
  1. INFLECTRA [Suspect]
     Active Substance: INFLIXIMAB-DYYB
     Dosage: 10 MG/KG EVRY 6 WEEK
     Route: 042
     Dates: start: 20210128, end: 20210128
  2. PREDNISONE. [Concomitant]
     Active Substance: PREDNISONE
     Dosage: 30 MG, DAILY (TAPER DOSE)
     Route: 048
  3. INFLECTRA [Suspect]
     Active Substance: INFLIXIMAB-DYYB
     Dosage: 400 MG, Q 0, 2, 6 WEEKS, THEN EVERY 8 WEEKS
     Route: 042
     Dates: start: 20201203
  4. JANUMET [Concomitant]
     Active Substance: METFORMIN HYDROCHLORIDE\SITAGLIPTIN PHOSPHATE
     Dosage: UNK
     Route: 065
  5. DAPAGLIFLOZIN. [Concomitant]
     Active Substance: DAPAGLIFLOZIN
     Dosage: UNK
     Route: 065
  6. PREDNISONE. [Concomitant]
     Active Substance: PREDNISONE
     Dosage: UNK
     Route: 065
  7. INFLECTRA [Suspect]
     Active Substance: INFLIXIMAB-DYYB
     Dosage: 400 MG, Q 0, 2, 6 WEEKS, THEN EVERY 8 WEEKS (INDUCTION WEEK 2 DOSE )
     Route: 042
     Dates: start: 20200519, end: 20200519
  8. INFLECTRA [Suspect]
     Active Substance: INFLIXIMAB-DYYB
     Dosage: 400 MG, Q 0, 2, 6 WEEKS, THEN EVERY 8 WEEKS (INDUCTION WEEK 6 DOSE )
     Route: 042
     Dates: start: 20200602, end: 20200602
  9. METHOTREXATE. [Concomitant]
     Active Substance: METHOTREXATE
     Dosage: 12.5 MG, WEEKLY (1250 MICROGRAM)
     Route: 048
     Dates: start: 20210120
  10. INFLECTRA [Suspect]
     Active Substance: INFLIXIMAB-DYYB
     Indication: COLITIS ULCERATIVE
     Dosage: 400 MG, Q 0, 2, 6 WEEKS, THEN EVERY 8 WEEKS (INDUCTION WEEK 0 DOSE )
     Route: 042
     Dates: start: 20200506, end: 20200506
  11. INFLECTRA [Suspect]
     Active Substance: INFLIXIMAB-DYYB
     Dosage: 400 MG, Q 0, 2, 6 WEEKS, THEN EVERY 8 WEEKS
     Route: 042
     Dates: start: 20210128
  12. INFLECTRA [Suspect]
     Active Substance: INFLIXIMAB-DYYB
     Dosage: 400 MG, Q 0, 2, 6 WEEKS, THEN EVERY 8 WEEKS
     Route: 042
     Dates: start: 20200629, end: 20201202
  13. INFLECTRA [Suspect]
     Active Substance: INFLIXIMAB-DYYB
     Dosage: 400 MG, Q 0, 2, 6 WEEKS, THEN EVERY 8 WEEKS
     Route: 042
     Dates: start: 20200827
  14. DIAMICRON [Concomitant]
     Active Substance: GLICLAZIDE
     Dosage: UNK
     Route: 065
  15. LYRICA [Concomitant]
     Active Substance: PREGABALIN
     Dosage: UNK
     Route: 065
  16. ALTACE [Concomitant]
     Active Substance: RAMIPRIL
     Dosage: UNK
     Route: 065
  17. PANTOPRAZOLE [Concomitant]
     Active Substance: PANTOPRAZOLE
     Dosage: UNK
     Route: 065
  18. SYNTHROID [Concomitant]
     Active Substance: LEVOTHYROXINE SODIUM
     Dosage: UNK
     Route: 065

REACTIONS (18)
  - Anaphylactoid reaction [Unknown]
  - Dyspnoea [Unknown]
  - COVID-19 [Recovered/Resolved]
  - Off label use [Not Recovered/Not Resolved]
  - Product use issue [Unknown]
  - Headache [Unknown]
  - Blood pressure fluctuation [Unknown]
  - Oxygen saturation abnormal [Unknown]
  - Erythema [Unknown]
  - Off label use [Unknown]
  - Off label use [Unknown]
  - Pyrexia [Recovering/Resolving]
  - Heart rate irregular [Unknown]
  - Chills [Not Recovered/Not Resolved]
  - Cough [Unknown]
  - Flushing [Unknown]
  - Condition aggravated [Not Recovered/Not Resolved]
  - Respiratory rate increased [Unknown]

NARRATIVE: CASE EVENT DATE: 20200827
